FAERS Safety Report 7841504-9 (Version None)
Quarter: 2011Q4

REPORT INFORMATION
  Report Type: 
  Country: None (occurrence: None)
  Receive Date: 20111025
  Receipt Date: 20111017
  Transmission Date: 20120403
  Serious: Yes (Death)
  Sender: FDA-Public Use
  Company Number: BE-UCBSA-041058

PATIENT
  Sex: Male

DRUGS (3)
  1. VIMPAT [Suspect]
     Indication: EPILEPSY
     Route: 048
  2. VIMPAT [Suspect]
     Indication: PARTIAL SEIZURES
     Dosage: 1 VIAL
     Route: 042
     Dates: start: 20110831
  3. KEPPRA [Suspect]
     Indication: EPILEPSY
     Dosage: DAILY DOSE: 3 G
     Route: 048

REACTIONS (8)
  - SEPTIC SHOCK [None]
  - STATUS EPILEPTICUS [None]
  - HEPATIC FAILURE [None]
  - ANURIA [None]
  - LACTIC ACIDOSIS [None]
  - BRONCHOPNEUMONIA [None]
  - DISSEMINATED INTRAVASCULAR COAGULATION [None]
  - RENAL FAILURE [None]
